FAERS Safety Report 9166686 (Version 1)
Quarter: 2013Q1

REPORT INFORMATION
  Report Type: Report from Study
  Country: AT (occurrence: AT)
  Receive Date: 20130315
  Receipt Date: 20130315
  Transmission Date: 20140127
  Serious: Yes (Other)
  Sender: FDA-Public Use
  Company Number: US-GILEAD-2013-0071770

PATIENT
  Age: 32 Year
  Sex: Female

DRUGS (5)
  1. TENOFOVIR DISOPROXIL FUMARATE [Suspect]
     Indication: HIV INFECTION
     Dosage: 300 MG, QD
     Route: 048
     Dates: start: 20110822
  2. EMTRICITABINE/TENOFOVIR DISOPROXIL FUMARATE [Suspect]
     Indication: HIV INFECTION
     Dosage: UNK UNK, QD
  3. RITONAVIR [Suspect]
     Indication: HIV INFECTION
     Dosage: 100 MG, QD
     Dates: start: 20110822
  4. DARUNAVIR [Suspect]
     Indication: HIV INFECTION
     Dosage: 750 MG, QD
     Route: 048
     Dates: start: 20110822
  5. DARUNAVIR [Suspect]
     Dosage: 800 MG, QD
     Route: 048
     Dates: start: 20120705

REACTIONS (3)
  - Abortion spontaneous [Unknown]
  - Anaemia [Unknown]
  - Vitamin D deficiency [Unknown]
